FAERS Safety Report 4809143-1 (Version None)
Quarter: 2005Q4

REPORT INFORMATION
  Report Type: 
  Country: None (occurrence: None)
  Receive Date: 20051021
  Receipt Date: 20021009
  Transmission Date: 20060501
  Serious: No
  Sender: FDA-Public Use
  Company Number: FR_021001548

PATIENT
  Age: 56 Year
  Sex: Female

DRUGS (5)
  1. ZYPREXA [Suspect]
     Indication: PSYCHOTIC DISORDER
     Dates: start: 20010901, end: 20020901
  2. VALPROATE SODIUM [Concomitant]
  3. TIAPRIDAL (TIAPRIDE) [Concomitant]
  4. GLUCOPHAGE [Concomitant]
  5. FUMAFER (FRROUS FUMARATE) [Concomitant]

REACTIONS (7)
  - CONDITION AGGRAVATED [None]
  - DIABETES MELLITUS [None]
  - GAMMA-GLUTAMYLTRANSFERASE INCREASED [None]
  - GRANULOCYTOPENIA [None]
  - HYPERCHOLESTEROLAEMIA [None]
  - LEUKOCYTOSIS [None]
  - LYMPHOCYTE PERCENTAGE INCREASED [None]
